FAERS Safety Report 24990811 (Version 2)
Quarter: 2025Q1

REPORT INFORMATION
  Report Type: Spontaneous
  Country: CN (occurrence: CN)
  Receive Date: 20250220
  Receipt Date: 20250227
  Transmission Date: 20250408
  Serious: Yes (Other)
  Sender: PFIZER
  Company Number: CN-PFIZER INC-PV202500020073

PATIENT
  Age: 68 Year
  Sex: Male
  Weight: 75 kg

DRUGS (2)
  1. AXITINIB [Suspect]
     Active Substance: AXITINIB
     Indication: Renal cancer
     Dosage: 5 MG, 2X/DAY
     Route: 048
     Dates: start: 20241122, end: 20241127
  2. TORIPALIMAB [Suspect]
     Active Substance: TORIPALIMAB
     Indication: Renal cancer
     Dosage: 240 MG, 1X/DAY
     Route: 041
     Dates: start: 20241122, end: 20241122

REACTIONS (3)
  - Blood pressure increased [Recovering/Resolving]
  - Pyrexia [Recovering/Resolving]
  - Rash [Recovering/Resolving]

NARRATIVE: CASE EVENT DATE: 20241122
